FAERS Safety Report 17043624 (Version 1)
Quarter: 2019Q4

REPORT INFORMATION
  Report Type: Spontaneous
  Country: US (occurrence: US)
  Receive Date: 20191017
  Receipt Date: 20191017
  Transmission Date: 20200122
  Serious: No
  Sender: FDA-Public Use
  Company Number: None

PATIENT
  Sex: Female
  Weight: 65.32 kg

DRUGS (15)
  1. REPATHA [Suspect]
     Active Substance: EVOLOCUMAB
     Indication: LOW DENSITY LIPOPROTEIN INCREASED
     Dates: start: 20190529, end: 20190813
  2. ZETIA [Concomitant]
     Active Substance: EZETIMIBE
  3. PANTOPRAZOLE [Concomitant]
     Active Substance: PANTOPRAZOLE
  4. DIGOXIN. [Concomitant]
     Active Substance: DIGOXIN
  5. MITOCORE [Concomitant]
  6. SUPPLEMENT REACTED MAGESIUM [Concomitant]
  7. VITAMIN D3 [Concomitant]
     Active Substance: CHOLECALCIFEROL
  8. LISINAPRIL [Concomitant]
  9. LIPI9TOR [Concomitant]
  10. XANIX [Concomitant]
  11. AMIODARONE [Concomitant]
     Active Substance: AMIODARONE
  12. XARELTO [Concomitant]
     Active Substance: RIVAROXABAN
  13. COREG [Concomitant]
     Active Substance: CARVEDILOL
  14. MELATONIN [Concomitant]
     Active Substance: MELATONIN
  15. TYLENOL [Concomitant]
     Active Substance: ACETAMINOPHEN

REACTIONS (5)
  - Eating disorder [None]
  - Swollen tongue [None]
  - Haemoglobin decreased [None]
  - Speech disorder [None]
  - Gastrointestinal haemorrhage [None]
